FAERS Safety Report 10156679 (Version 1)
Quarter: 2014Q2

REPORT INFORMATION
  Report Type: Spontaneous
  Country: IT (occurrence: None)
  Receive Date: 20140505
  Receipt Date: 20140505
  Transmission Date: 20141212
  Serious: Yes (Hospitalization)
  Sender: FDA-Public Use
  Company Number: 2014AP002757

PATIENT
  Age: 83 Year
  Sex: Male

DRUGS (2)
  1. CLARITHROMYCIN [Suspect]
     Route: 048
     Dates: start: 20130502, end: 20130509
  2. COUMADIN [Suspect]
     Indication: THROMBOPHLEBITIS
     Dosage: 1DF PRN, ORAL.
     Dates: start: 20070101, end: 20130509

REACTIONS (3)
  - Hypocoagulable state [None]
  - Haematuria [None]
  - Drug interaction [None]
